FAERS Safety Report 6122135-8 (Version None)
Quarter: 2009Q1

REPORT INFORMATION
  Report Type: 
  Country: None (occurrence: None)
  Receive Date: 20090318
  Receipt Date: 20090309
  Transmission Date: 20090719
  Serious: Yes (Hospitalization)
  Sender: FDA-Public Use
  Company Number: FR-JNJFOC-20090303034

PATIENT
  Sex: Female

DRUGS (6)
  1. RISPERDAL [Suspect]
     Indication: DRUG USE FOR UNKNOWN INDICATION
     Route: 048
  2. ZYPREXA [Suspect]
     Indication: DRUG USE FOR UNKNOWN INDICATION
     Dosage: FOR 1 AND 1/2 MONTH
     Route: 048
  3. BREXIN [Suspect]
     Indication: DRUG USE FOR UNKNOWN INDICATION
     Route: 048
  4. MEPRONIZINE [Suspect]
     Indication: DRUG USE FOR UNKNOWN INDICATION
     Route: 048
  5. METHOCARBAMOL [Concomitant]
     Indication: DRUG USE FOR UNKNOWN INDICATION
     Route: 065
  6. TANAKAN [Concomitant]
     Indication: DRUG USE FOR UNKNOWN INDICATION
     Dosage: GINGKO TREE LEAVES EXTRACT
     Route: 065

REACTIONS (5)
  - CHOLESTASIS [None]
  - DISTURBANCE IN ATTENTION [None]
  - HYPOTHERMIA [None]
  - PANCREATITIS ACUTE [None]
  - PERITONEAL EFFUSION [None]
